FAERS Safety Report 9837494 (Version 1)
Quarter: 2014Q1

REPORT INFORMATION
  Report Type: Spontaneous
  Country: JP (occurrence: JP)
  Receive Date: 20140123
  Receipt Date: 20140123
  Transmission Date: 20141002
  Serious: No
  Sender: FDA-Public Use
  Company Number: JP-JNJFOC-20140110816

PATIENT
  Sex: 0

DRUGS (2)
  1. DUROTEP MT [Suspect]
     Indication: PRODUCT USED FOR UNKNOWN INDICATION
     Dosage: TWO 50 UG/HR PATCHES AND TWO 25 UG/PATCHES WERE APPLIED IN TOTAL
     Route: 062
     Dates: start: 20140112
  2. DUROTEP MT [Suspect]
     Indication: PRODUCT USED FOR UNKNOWN INDICATION
     Dosage: ONE 50 UG/HR PATCH AND ONE 25 UG/HR PATCH
     Route: 062

REACTIONS (1)
  - Medication error [Unknown]
